FAERS Safety Report 6231958-6 (Version None)
Quarter: 2009Q2

REPORT INFORMATION
  Report Type: 
  Country: None (occurrence: None)
  Receive Date: 20090616
  Receipt Date: 20090127
  Transmission Date: 20091009
  Serious: No
  Sender: FDA-Public Use
  Company Number: US-ABBOTT-09P-163-0500542-00

PATIENT
  Sex: Female

DRUGS (13)
  1. GENGRAF 25MG [Suspect]
     Indication: RENAL TRANSPLANT
     Dates: start: 19990101
  2. POTASSIUM CHLORIDE [Concomitant]
     Indication: DRUG USE FOR UNKNOWN INDICATION
  3. LIPITOR [Concomitant]
     Indication: DRUG USE FOR UNKNOWN INDICATION
  4. AMLODIPINE [Concomitant]
     Indication: DRUG USE FOR UNKNOWN INDICATION
  5. DIOVAN [Concomitant]
     Indication: DRUG USE FOR UNKNOWN INDICATION
  6. DOCUSATE SODIUM [Concomitant]
     Indication: DRUG USE FOR UNKNOWN INDICATION
  7. CELLCEPT [Concomitant]
     Indication: DRUG USE FOR UNKNOWN INDICATION
  8. BACTRIM [Concomitant]
     Indication: DRUG USE FOR UNKNOWN INDICATION
     Dosage: 1 TAB EVERY MONDAY, WED, AND FRI.
  9. HYDROCHLOROTHIAZIDE [Concomitant]
     Indication: DRUG USE FOR UNKNOWN INDICATION
  10. FOSAMAX [Concomitant]
     Indication: DRUG USE FOR UNKNOWN INDICATION
  11. NEXIUM [Concomitant]
     Indication: DRUG USE FOR UNKNOWN INDICATION
  12. CLONIDINE [Concomitant]
     Indication: DRUG USE FOR UNKNOWN INDICATION
  13. PREDNISONE [Concomitant]
     Indication: DRUG USE FOR UNKNOWN INDICATION

REACTIONS (1)
  - DRUG LEVEL DECREASED [None]
